FAERS Safety Report 11814718 (Version 1)
Quarter: 2015Q4

REPORT INFORMATION
  Report Type: Spontaneous
  Country: AU (occurrence: AU)
  Receive Date: 20151209
  Receipt Date: 20151209
  Transmission Date: 20160305
  Serious: Yes (Hospitalization)
  Sender: FDA-Public Use
  Company Number: AU-AMGEN-AUSSP2015130285

PATIENT
  Age: 66 Year
  Sex: Female
  Weight: 140 kg

DRUGS (9)
  1. PREDNISONE. [Concomitant]
     Active Substance: PREDNISONE
     Dosage: 15 MG, DAILY
  2. ATENOLOL. [Concomitant]
     Active Substance: ATENOLOL
     Dosage: 25 MG, DAILY
     Dates: start: 201402
  3. CORALAN [Suspect]
     Active Substance: IVABRADINE HYDROCHLORIDE
     Dosage: 7.5 MG, BID
     Route: 048
     Dates: start: 201402
  4. MOBIC [Concomitant]
     Active Substance: MELOXICAM
     Indication: ARTHRITIS
     Dosage: 15 MG, DAILY
     Dates: start: 1999
  5. SEVIKAR [Concomitant]
     Active Substance: AMLODIPINE BESYLATE\OLMESARTAN MEDOXOMIL
     Dosage: UNK
     Dates: start: 201402, end: 201402
  6. CORALAN [Suspect]
     Active Substance: IVABRADINE HYDROCHLORIDE
     Indication: HEART RATE INCREASED
     Dosage: 5 MG, BID
     Route: 048
     Dates: start: 2012
  7. OLMETEC [Concomitant]
     Active Substance: OLMESARTAN MEDOXOMIL
     Indication: HYPERTENSION
     Dosage: 20 MG, DAILY
  8. CORTISONE [Concomitant]
     Active Substance: CORTISONE\HYDROCORTISONE
     Dosage: UNK
     Dates: start: 201403, end: 201403
  9. CORALAN [Suspect]
     Active Substance: IVABRADINE HYDROCHLORIDE
     Dosage: 5 MG, BID
     Route: 048

REACTIONS (10)
  - Asthma [Unknown]
  - Cough [Recovered/Resolved]
  - Hypersensitivity [Unknown]
  - Ventricular extrasystoles [Recovering/Resolving]
  - Dyspnoea [Unknown]
  - Sinus tachycardia [Unknown]
  - Blood pressure inadequately controlled [Recovered/Resolved]
  - Weight increased [Unknown]
  - Chest pain [Unknown]
  - Pulse abnormal [Recovering/Resolving]

NARRATIVE: CASE EVENT DATE: 2014
